FAERS Safety Report 15634094 (Version 1)
Quarter: 2018Q4

REPORT INFORMATION
  Report Type: Spontaneous
  Country: US (occurrence: US)
  Receive Date: 20181119
  Receipt Date: 20181119
  Transmission Date: 20190205
  Serious: No
  Sender: FDA-Public Use
  Company Number: US-PFIZER INC-2016440857

PATIENT
  Age: 70 Year
  Sex: Male

DRUGS (23)
  1. LUPRON [Concomitant]
     Active Substance: LEUPROLIDE ACETATE
     Dosage: UNK
     Dates: start: 201608
  2. ADRIAMYCIN [Concomitant]
     Active Substance: DOXORUBICIN HYDROCHLORIDE
     Dosage: UNK (1 INFUSED OVER 24 HOURS X 1 ON WEEKS 1, 3, AND 5 )
     Dates: start: 20160915
  3. HYDROMORPHONE [Concomitant]
     Active Substance: HYDROMORPHONE
     Indication: PAIN
     Dosage: 2 MG, AS NEEDED (2 MG, 1 TAB, PO, Q6H, AS NEEDED FOR PAIN)
     Route: 048
  4. HYDROCORTISONE. [Concomitant]
     Active Substance: HYDROCORTISONE
     Dosage: 30 MG, DAILY (10 MG TAB BY MOUTH: 2 TABLETS {20MG} QAM AND 1 TABLET {10MG) QPM)
     Route: 048
     Dates: start: 20160915
  5. TAMSULOSIN [Concomitant]
     Active Substance: TAMSULOSIN
     Dosage: 0.4 MG, UNK
     Dates: start: 20160703
  6. EMCYT [Suspect]
     Active Substance: ESTRAMUSTINE PHOSPHATE SODIUM
     Dosage: UNK, CYCLIC [ONE WEEK ON AND ONE WEEK OFF]
     Route: 048
  7. DOCETAXEL. [Concomitant]
     Active Substance: DOCETAXEL
     Dosage: UNK (DAY 1 ON WEEKS 21 4 AND 6 OFF WEEKS 7 AND 8)
     Dates: start: 20160915
  8. POLYETHYLENE GLYCOL 3350. [Concomitant]
     Active Substance: POLYETHYLENE GLYCOL 3350
     Dosage: UNK
     Dates: start: 20160727
  9. DOXORUBICIN [Concomitant]
     Active Substance: DOXORUBICIN
     Dosage: UNK
     Dates: start: 20160915
  10. ESTRAMUSTINE [Concomitant]
     Active Substance: ESTRAMUSTINE
     Dosage: 280 MG, CYCLIC (140MG CAP BY MOUTH: 2 CAPS TID FOR 7 DAYS ON WEEKS 2, 4, AND 6)
     Route: 048
     Dates: start: 20160915
  11. SENNOSIDES. [Concomitant]
     Active Substance: SENNOSIDES
     Dosage: 17.2 MG, 2X/DAY (TAKE 2 TABS BY MOUTH TWICE A DAY)
     Route: 048
  12. KETOCONAZOLE. [Concomitant]
     Active Substance: KETOCONAZOLE
     Dosage: 400 MG, CYCLIC  (7 DAYS ON WEEKS 1 3, AND 5)
     Route: 048
     Dates: start: 20160915
  13. VITAMIN C [Concomitant]
     Active Substance: ASCORBIC ACID
     Dosage: 250 MG, 3X/DAY (250 MG: 1 TAB TID )
     Dates: start: 20160915
  14. DEXAMETHASONE. [Concomitant]
     Active Substance: DEXAMETHASONE
     Dosage: 6 MG, 1X/DAY (MORNING ONLY )
     Route: 048
  15. DOCUSATE SODIUM/SENNOSIDE A+B [Concomitant]
     Dosage: 200 MG, 2X/DAY (2 CAPS BY MOUTH TWICE A DAY )
     Route: 048
  16. AMLODIPINE [Concomitant]
     Active Substance: AMLODIPINE BESYLATE
     Dosage: 5 MG, DAILY
     Route: 048
  17. TAMSULOSIN [Concomitant]
     Active Substance: TAMSULOSIN
     Dosage: 0.4 UNK, UNK
     Dates: start: 20160727
  18. METOPROLOL. [Concomitant]
     Active Substance: METOPROLOL
     Dosage: 25 MG, UNK
     Dates: start: 20160727
  19. EMCYT [Suspect]
     Active Substance: ESTRAMUSTINE PHOSPHATE SODIUM
     Dosage: 280 MG, CYCLIC  (2 CAPS PO DAILY X7DAYS ON WEEKS 2, 4 AND 6 THEN OFF FOR 2 WEEKS)
     Route: 048
  20. DEXAMETHASONE. [Concomitant]
     Active Substance: DEXAMETHASONE
     Dosage: 4 MG, 2X/DAY (4 MG TAB BY MOUTH: 1 TAB. PO BID THE DAY BEFORE, THE DAY OF, AND DAY AFTER TAXOTERE IN
     Route: 048
     Dates: start: 20160915
  21. WARFARIN [Concomitant]
     Active Substance: WARFARIN
     Dosage: 1 MG, DAILY
     Route: 048
     Dates: start: 20160915
  22. TAXOTERE [Concomitant]
     Active Substance: DOCETAXEL
     Dosage: UNK UNK, CYCLIC (DAY 1 ON WEEKS 2, 4 AND 6 OFF WEEKS 7 AND 8)
     Dates: start: 20160915
  23. LACTULOSE. [Concomitant]
     Active Substance: LACTULOSE
     Indication: DIARRHOEA
     Dosage: 45 ML, DAILY (10GM/15ML )
     Route: 048

REACTIONS (3)
  - Full blood count decreased [Recovering/Resolving]
  - Off label use [Unknown]
  - Product use issue [Unknown]

NARRATIVE: CASE EVENT DATE: 2017
